FAERS Safety Report 4696542-4 (Version None)
Quarter: 2005Q2

REPORT INFORMATION
  Report Type: 
  Country: None (occurrence: None)
  Receive Date: 20050620
  Receipt Date: 20050610
  Transmission Date: 20051028
  Serious: Yes (Hospitalization, Other)
  Sender: FDA-Public Use
  Company Number: 2005071190

PATIENT
  Age: 55 Year
  Sex: Female
  Weight: 77.1115 kg

DRUGS (7)
  1. NEURONTIN [Suspect]
     Indication: NEUROPATHY
     Dosage: 1600 MG (800 MG, 2 IN 1 D)
  2. TENORMIN [Concomitant]
  3. AVANDAMET (METFORMIN HYDROCHLORIDE, ROSIGLITAZONE) [Concomitant]
  4. CRESTOR [Concomitant]
  5. NPH INSULIN [Concomitant]
  6. INSULIN, REGULAR (INSULIN) [Concomitant]
  7. ULTRACET (PARACETAMOL, TRAMADOL HYDROHCLORIDE) [Concomitant]

REACTIONS (2)
  - CHEST PAIN [None]
  - DYSPNOEA [None]
